FAERS Safety Report 5450983-6 (Version None)
Quarter: 2007Q3

REPORT INFORMATION
  Report Type: 
  Country: None (occurrence: None)
  Receive Date: 20070911
  Receipt Date: 20070911
  Transmission Date: 20080115
  Serious: No
  Sender: FDA-Public Use
  Company Number: None

PATIENT
  Sex: Female
  Weight: 63.5036 kg

DRUGS (2)
  1. METOPROLOL SUCCINATE EXTENDED RELEASE [Suspect]
     Indication: HYPERTENSION
     Dosage: BID PO
     Route: 048
     Dates: start: 20070831, end: 20070906
  2. METOPROLOL SUCCINATE EXTENDED RELEASE [Suspect]
     Indication: TACHYCARDIA
     Dosage: BID PO
     Route: 048
     Dates: start: 20070831, end: 20070906

REACTIONS (1)
  - PRURITUS GENERALISED [None]
